FAERS Safety Report 9339976 (Version 5)
Quarter: 2014Q2

REPORT INFORMATION
  Report Type: Spontaneous
  Country: US (occurrence: US)
  Receive Date: 20130610
  Receipt Date: 20140430
  Transmission Date: 20141212
  Serious: Yes (Other)
  Sender: FDA-Public Use
  Company Number: US-ASTELLAS-2013US004847

PATIENT
  Age: 78 Year
  Sex: Male

DRUGS (3)
  1. XTANDI [Suspect]
     Indication: PROSTATE CANCER
     Route: 048
     Dates: start: 20130404
  2. XTANDI [Suspect]
     Route: 048
     Dates: start: 20130522
  3. XTANDI [Suspect]
     Route: 048

REACTIONS (10)
  - Cystitis [Unknown]
  - Peroneal nerve palsy [Unknown]
  - Hypoaesthesia [Unknown]
  - Neuropathy peripheral [Unknown]
  - Upper respiratory tract infection [Unknown]
  - Pneumonia [Unknown]
  - Oedema peripheral [Unknown]
  - Back pain [Unknown]
  - Weight decreased [Recovering/Resolving]
  - Nail discolouration [Not Recovered/Not Resolved]
